FAERS Safety Report 17647556 (Version 4)
Quarter: 2020Q4

REPORT INFORMATION
  Report Type: Report from Study
  Country: US (occurrence: US)
  Receive Date: 20200408
  Receipt Date: 20201130
  Transmission Date: 20210113
  Serious: Yes (Hospitalization)
  Sender: FDA-Public Use
  Company Number: US-PUMA BIOTECHNOLOGY, LTD.-2019US012072

PATIENT

DRUGS (5)
  1. NERLYNX [Suspect]
     Active Substance: NERATINIB
     Dosage: 160 MG (4 TABLETS), DAILY
     Route: 048
     Dates: start: 20200123, end: 2020
  2. NERLYNX [Suspect]
     Active Substance: NERATINIB
     Dosage: 200 MG (5 TABLETS), DAILY
     Route: 048
     Dates: start: 2020, end: 2020
  3. IMODIUM [Concomitant]
     Active Substance: LOPERAMIDE HYDROCHLORIDE
     Indication: PROPHYLAXIS AGAINST DIARRHOEA
  4. NERLYNX [Suspect]
     Active Substance: NERATINIB
     Indication: BREAST CANCER FEMALE
     Dosage: 120 MG (3 TABLETS), DAILY
     Route: 048
     Dates: start: 20191212, end: 20200122
  5. NERLYNX [Suspect]
     Active Substance: NERATINIB
     Dosage: 160 MG (4 TABLETS), DAILY
     Route: 048
     Dates: start: 2020

REACTIONS (10)
  - Impaired quality of life [Recovering/Resolving]
  - Hot flush [Unknown]
  - Diarrhoea [Unknown]
  - Product dose omission issue [Unknown]
  - Abdominal discomfort [Unknown]
  - Flatulence [Unknown]
  - Tooth extraction [Unknown]
  - Abdominal pain upper [Recovered/Resolved]
  - Hospitalisation [Unknown]
  - Underdose [Unknown]

NARRATIVE: CASE EVENT DATE: 2019
